FAERS Safety Report 26053275 (Version 1)
Quarter: 2025Q4

REPORT INFORMATION
  Report Type: Spontaneous
  Country: US (occurrence: US)
  Receive Date: 20251117
  Receipt Date: 20251117
  Transmission Date: 20260118
  Serious: No
  Sender: LEO PHARM
  Company Number: US-LEO Pharma-384180

PATIENT
  Sex: Male

DRUGS (1)
  1. ANZUPGO [Suspect]
     Active Substance: DELGOCITINIB
     Indication: Hand dermatitis

REACTIONS (3)
  - Peripheral swelling [Unknown]
  - Localised infection [Unknown]
  - Paraesthesia [Unknown]
